FAERS Safety Report 5502990-2 (Version None)
Quarter: 2007Q4

REPORT INFORMATION
  Report Type: 
  Country: None (occurrence: None)
  Receive Date: 20071029
  Receipt Date: 20071029
  Transmission Date: 20080405
  Serious: Yes (Other)
  Sender: FDA-Public Use
  Company Number: None

PATIENT
  Sex: Male

DRUGS (4)
  1. REVLIMID [Suspect]
     Indication: MULTIPLE MYELOMA
     Dosage: 25MG  DAILY X 21D/28D  PO
     Route: 048
     Dates: start: 20070712, end: 20070803
  2. REVLIMID [Suspect]
     Indication: MULTIPLE MYELOMA
     Dosage: 10MG  DAILY X21D/28D  PO
     Route: 048
     Dates: start: 20070810, end: 20070927
  3. PAMIDRONATE DISODIUM [Concomitant]
  4. AMITRIPTYLINE HCL [Concomitant]

REACTIONS (8)
  - ANAEMIA [None]
  - LACUNAR INFARCTION [None]
  - MULTIPLE MYELOMA [None]
  - PANCYTOPENIA [None]
  - PLATELET COUNT DECREASED [None]
  - PRESYNCOPE [None]
  - SYNCOPE [None]
  - TREMOR [None]
